FAERS Safety Report 19610206 (Version 1)
Quarter: 2021Q3

REPORT INFORMATION
  Report Type: Spontaneous
  Country: US (occurrence: US)
  Receive Date: 20210723
  Receipt Date: 20210723
  Transmission Date: 20211014
  Serious: Yes (Hospitalization)
  Sender: FDA-Public Use
  Company Number: None

PATIENT
  Age: 11 Year
  Sex: Female
  Weight: 28 kg

DRUGS (4)
  1. VINCRISTINE SULFATE 1.5 MG [Suspect]
     Active Substance: VINCRISTINE SULFATE
     Dates: end: 20210709
  2. LEUCOVORIN CALCIUM 75 MG [Suspect]
     Active Substance: LEUCOVORIN CALCIUM
     Dates: end: 20210712
  3. MERCAPTOPURINE 150 MG [Suspect]
     Active Substance: MERCAPTOPURINE
     Dates: end: 20210714
  4. METHOTREXATE 2040 MG [Suspect]
     Active Substance: METHOTREXATE
     Dates: end: 20210710

REACTIONS (2)
  - Stomatitis [None]
  - Therapy interrupted [None]

NARRATIVE: CASE EVENT DATE: 20210714
